FAERS Safety Report 22236012 (Version 1)
Quarter: 2023Q2

REPORT INFORMATION
  Report Type: Spontaneous
  Country: US (occurrence: None)
  Receive Date: 20230419
  Receipt Date: 20230419
  Transmission Date: 20230722
  Serious: Yes (Hospitalization)
  Sender: FDA-Public Use
  Company Number: None

PATIENT
  Sex: Female

DRUGS (1)
  1. HUMIRA [Suspect]
     Active Substance: ADALIMUMAB
     Indication: Crohn^s disease
     Dosage: 40 MG/0.4ML SUBCUTANEOUS? ?INJECT 40MG (0.4ML) UNDER THE SKIN (SUBCUTANEOUS INJECTION) EVERY TWO WEE
     Route: 058
     Dates: start: 20210810

REACTIONS (1)
  - Infection [None]
